FAERS Safety Report 11158495 (Version 1)
Quarter: 2015Q2

REPORT INFORMATION
  Report Type: Spontaneous
  Country: US (occurrence: None)
  Receive Date: 20150602
  Receipt Date: 20150602
  Transmission Date: 20150821
  Serious: Yes (Hospitalization)
  Sender: FDA-Public Use
  Company Number: None

PATIENT
  Age: 65 Year
  Sex: Male
  Weight: 93.7 kg

DRUGS (1)
  1. NIVOLUMAB [Suspect]
     Active Substance: NIVOLUMAB
     Indication: LUNG NEOPLASM MALIGNANT
     Route: 050
     Dates: start: 20150423

REACTIONS (11)
  - Decreased appetite [None]
  - Blood creatinine increased [None]
  - Vomiting [None]
  - Hypomagnesaemia [None]
  - Fatigue [None]
  - Nausea [None]
  - Blood urea increased [None]
  - Hypokalaemia [None]
  - Muscular weakness [None]
  - Asthenia [None]
  - Myalgia [None]

NARRATIVE: CASE EVENT DATE: 20150522
